FAERS Safety Report 25456207 (Version 1)
Quarter: 2025Q2

REPORT INFORMATION
  Report Type: Spontaneous
  Country: GB (occurrence: GB)
  Receive Date: 20250619
  Receipt Date: 20250619
  Transmission Date: 20250717
  Serious: Yes (Disabling, Other)
  Sender: ABBVIE
  Company Number: None

PATIENT
  Age: 23 Year
  Sex: Female
  Weight: 58 kg

DRUGS (1)
  1. RINVOQ [Suspect]
     Active Substance: UPADACITINIB
     Indication: Colitis ulcerative
     Route: 048

REACTIONS (7)
  - Menstrual disorder [Recovering/Resolving]
  - Breast pain [Recovered/Resolved]
  - Depression [Recovering/Resolving]
  - Rash [Not Recovered/Not Resolved]
  - Anxiety [Recovering/Resolving]
  - Weight loss poor [Unknown]
  - Weight increased [Unknown]
